FAERS Safety Report 15689161 (Version 1)
Quarter: 2018Q4

REPORT INFORMATION
  Report Type: Spontaneous
  Country: US (occurrence: US)
  Receive Date: 20181204
  Receipt Date: 20181204
  Transmission Date: 20190205
  Serious: No
  Sender: FDA-Public Use
  Company Number: None

PATIENT
  Age: 39 Year
  Sex: Female
  Weight: 72 kg

DRUGS (1)
  1. AIMOVIG [Suspect]
     Active Substance: ERENUMAB-AOOE
     Dosage: ?          QUANTITY:1 INJECTION(S);OTHER FREQUENCY:MONTHLY;?
     Route: 058

REACTIONS (9)
  - Insomnia [None]
  - Epistaxis [None]
  - Abnormal dreams [None]
  - Fatigue [None]
  - Dizziness [None]
  - Nail ridging [None]
  - Dyspepsia [None]
  - Nausea [None]
  - Restlessness [None]

NARRATIVE: CASE EVENT DATE: 20180911
